FAERS Safety Report 13030882 (Version 1)
Quarter: 2016Q4

REPORT INFORMATION
  Report Type: Spontaneous
  Country: US (occurrence: US)
  Receive Date: 20161215
  Receipt Date: 20161215
  Transmission Date: 20170207
  Serious: No
  Sender: FDA-Public Use
  Company Number: US-BAUSCH-BL-2016-012099

PATIENT
  Age: 26 Year
  Sex: Female

DRUGS (1)
  1. APRISO [Suspect]
     Active Substance: MESALAMINE
     Indication: GASTROINTESTINAL DISORDER
     Route: 048
     Dates: start: 20160517

REACTIONS (6)
  - Tremor [Recovering/Resolving]
  - Influenza like illness [Recovering/Resolving]
  - Off label use [Unknown]
  - Gastrooesophageal reflux disease [Recovering/Resolving]
  - Drug dose omission [Unknown]
  - Nausea [Recovering/Resolving]

NARRATIVE: CASE EVENT DATE: 201605
